FAERS Safety Report 17152892 (Version 2)
Quarter: 2019Q4

REPORT INFORMATION
  Report Type: Spontaneous
  Country: US (occurrence: US)
  Receive Date: 20191213
  Receipt Date: 20191213
  Transmission Date: 20200122
  Serious: Yes (Other)
  Sender: FDA-Public Use
  Company Number: US-CELGENEUS-USA-20191202714

PATIENT
  Age: 69 Year
  Sex: Female

DRUGS (3)
  1. LEVETIRACETA [Concomitant]
     Indication: PRODUCT USED FOR UNKNOWN INDICATION
     Route: 065
  2. REVLIMID [Suspect]
     Active Substance: LENALIDOMIDE
     Dosage: 2.5 MILLIGRAM
     Route: 048
     Dates: start: 201912
  3. REVLIMID [Suspect]
     Active Substance: LENALIDOMIDE
     Indication: PLASMA CELL MYELOMA
     Dosage: 2.5 MILLIGRAM
     Route: 048
     Dates: start: 201911

REACTIONS (4)
  - Seizure [Unknown]
  - Thrombosis [Unknown]
  - Renal disorder [Unknown]
  - Diarrhoea [Unknown]

NARRATIVE: CASE EVENT DATE: 2019
